FAERS Safety Report 7325498-0 (Version None)
Quarter: 2011Q1

REPORT INFORMATION
  Report Type: 
  Country: None (occurrence: None)
  Receive Date: 20110302
  Receipt Date: 20110224
  Transmission Date: 20110831
  Serious: Yes (Hospitalization)
  Sender: FDA-Public Use
  Company Number: FR-BRISTOL-MYERS SQUIBB COMPANY-15562259

PATIENT
  Age: 58 Year
  Sex: Male

DRUGS (5)
  1. CYTARABINE [Suspect]
     Indication: B-CELL LYMPHOMA
  2. ETOPOSIDE [Suspect]
     Indication: B-CELL LYMPHOMA
  3. METHYLPREDNISOLONE [Suspect]
     Indication: B-CELL LYMPHOMA
  4. RITUXIMAB [Suspect]
     Indication: B-CELL LYMPHOMA
  5. CISPLATIN [Suspect]
     Indication: B-CELL LYMPHOMA

REACTIONS (2)
  - SUBDURAL HAEMATOMA [None]
  - THROMBOCYTOPENIA [None]
